FAERS Safety Report 9019132 (Version 1)
Quarter: 2013Q1

REPORT INFORMATION
  Report Type: Spontaneous
  Country: US (occurrence: US)
  Receive Date: 20130118
  Receipt Date: 20130118
  Transmission Date: 20140127
  Serious: Yes (Hospitalization, Other)
  Sender: FDA-Public Use
  Company Number: CHPA2013US000914

PATIENT
  Age: 75 Year
  Sex: Female

DRUGS (2)
  1. MYOFLEX ANALGESIC CREME [Suspect]
     Indication: PAIN
     Dosage: UNK, UNK
     Route: 061
  2. LANACANE [Concomitant]

REACTIONS (8)
  - Feeling abnormal [Recovered/Resolved]
  - Lower limb fracture [Recovered/Resolved]
  - Skin discolouration [Recovered/Resolved]
  - Infection [Recovered/Resolved]
  - Wound [Recovered/Resolved]
  - Impaired healing [Recovered/Resolved]
  - Fall [Recovered/Resolved]
  - Living in residential institution [Recovered/Resolved]
